FAERS Safety Report 25022293 (Version 1)
Quarter: 2025Q1

REPORT INFORMATION
  Report Type: Spontaneous
  Country: US (occurrence: US)
  Receive Date: 20250228
  Receipt Date: 20250228
  Transmission Date: 20250409
  Serious: Yes (Other)
  Sender: EMCURE PHARMACEUTICALS LTD
  Company Number: US-AVET LIFESCIENCES LTD-2025-AVET-000047

PATIENT
  Sex: Male

DRUGS (10)
  1. LISINOPRIL [Suspect]
     Active Substance: LISINOPRIL
     Indication: Product used for unknown indication
     Route: 065
  2. METOPROLOL SUCCINATE [Concomitant]
     Active Substance: METOPROLOL SUCCINATE
     Indication: Atrial fibrillation
     Route: 065
  3. APIXABAN [Concomitant]
     Active Substance: APIXABAN
     Indication: Atrial fibrillation
  4. ISOFLURANE [Concomitant]
     Active Substance: ISOFLURANE
     Indication: General anaesthesia
  5. MIDAZOLAM [Concomitant]
     Active Substance: MIDAZOLAM
     Route: 065
  6. PROPOFOL [Concomitant]
     Active Substance: PROPOFOL
  7. FENTANYL [Concomitant]
     Active Substance: FENTANYL
  8. LIDOCAINE [Concomitant]
     Active Substance: LIDOCAINE
  9. PHENYLEPHRINE [Concomitant]
     Active Substance: PHENYLEPHRINE
     Indication: Hypotension
     Route: 065
  10. PHENYLEPHRINE [Concomitant]
     Active Substance: PHENYLEPHRINE
     Route: 065

REACTIONS (1)
  - Vasoplegia syndrome [Unknown]
